FAERS Safety Report 13595962 (Version 1)
Quarter: 2017Q2

REPORT INFORMATION
  Report Type: Spontaneous
  Country: US (occurrence: US)
  Receive Date: 20170531
  Receipt Date: 20170531
  Transmission Date: 20170830
  Serious: No
  Sender: FDA-Public Use
  Company Number: US-TEVA-773044ACC

PATIENT
  Sex: Female

DRUGS (1)
  1. NEXT CHOICE [Suspect]
     Active Substance: LEVONORGESTREL
     Indication: POST COITAL CONTRACEPTION
     Dates: start: 20170414, end: 20170414

REACTIONS (2)
  - Menstruation irregular [Recovered/Resolved]
  - Hypomenorrhoea [Recovered/Resolved]

NARRATIVE: CASE EVENT DATE: 20170430
